FAERS Safety Report 6385871-4 (Version None)
Quarter: 2009Q4

REPORT INFORMATION
  Report Type: 
  Country: None (occurrence: None)
  Receive Date: 20091002
  Receipt Date: 20090924
  Transmission Date: 20100525
  Serious: Yes (Other)
  Sender: FDA-Public Use
  Company Number: FR-AMGEN-UK366064

PATIENT
  Age: 57 Year
  Sex: Female

DRUGS (2)
  1. ARANESP [Suspect]
     Indication: OVARIAN CANCER
     Route: 065
     Dates: start: 20090903
  2. UNSPECIFIED ANTINEOPLASTIC AGENT [Concomitant]
     Route: 065

REACTIONS (2)
  - DRUG ADMINISTRATION ERROR [None]
  - OVERDOSE [None]
